FAERS Safety Report 9263330 (Version 1)
Quarter: 2013Q2

REPORT INFORMATION
  Report Type: Spontaneous
  Country: US (occurrence: US)
  Receive Date: 20130430
  Receipt Date: 20130430
  Transmission Date: 20140414
  Serious: No
  Sender: FDA-Public Use
  Company Number: US-ABBOTT-12P-163-1024657-00

PATIENT
  Age: 77 Year
  Sex: Female
  Weight: 42.68 kg

DRUGS (5)
  1. CREON [Suspect]
     Indication: MALABSORPTION
     Dosage: 2 CAPSULES WITH EACH MEAL
     Dates: start: 20121204
  2. CREON [Suspect]
     Indication: DYSPEPSIA
  3. LEVOTHYROXINE [Concomitant]
     Indication: HYPOTHYROIDISM
  4. ALEVE [Concomitant]
     Indication: PRODUCT USED FOR UNKNOWN INDICATION
  5. ATIVAN [Concomitant]
     Indication: INSOMNIA
     Dosage: AT BED TIME

REACTIONS (5)
  - Weight decreased [Not Recovered/Not Resolved]
  - Dizziness [Not Recovered/Not Resolved]
  - Nasopharyngitis [Not Recovered/Not Resolved]
  - Constipation [Not Recovered/Not Resolved]
  - Off label use [Unknown]
